FAERS Safety Report 9484716 (Version 2)
Quarter: 2013Q3

REPORT INFORMATION
  Report Type: Spontaneous
  Country: US (occurrence: US)
  Receive Date: 20130828
  Receipt Date: 20130828
  Transmission Date: 20140515
  Serious: Yes (Death)
  Sender: FDA-Public Use
  Company Number: US-AMGEN-KDL436531

PATIENT
  Age: 58 Year
  Sex: Female

DRUGS (18)
  1. PROCRIT [Suspect]
     Indication: PRODUCT USED FOR UNKNOWN INDICATION
     Dosage: 10000 IU, UNK
     Route: 065
  2. INSULIN [Concomitant]
  3. AMLODIPINE BESILATE [Concomitant]
  4. TOPROL XL [Concomitant]
  5. VALSARTAN [Concomitant]
  6. FUROSEMIDE [Concomitant]
  7. POTASSIUM [Concomitant]
  8. CLOPIDOGREL BISULFATE [Concomitant]
  9. AMITRIPTYLINE [Concomitant]
  10. ACETYLSALICYLIC ACID [Concomitant]
  11. IRON [Concomitant]
  12. ALBUTEROL SULFATE [Concomitant]
  13. TRAMADOL [Concomitant]
  14. SITAGLIPTIN [Concomitant]
  15. LEVEMIR [Concomitant]
  16. GLIPIZIDE [Concomitant]
  17. PRAVASTATIN [Concomitant]
  18. ACETAMINOPHEN W/OXYCODONE [Concomitant]

REACTIONS (1)
  - Death [Fatal]
